FAERS Safety Report 9493536 (Version 1)
Quarter: 2013Q3

REPORT INFORMATION
  Report Type: Spontaneous
  Country: US (occurrence: US)
  Receive Date: 20130902
  Receipt Date: 20130902
  Transmission Date: 20140515
  Serious: No
  Sender: FDA-Public Use
  Company Number: US-PFIZER INC-2013249850

PATIENT
  Age: 52 Year
  Sex: Female

DRUGS (1)
  1. ADVIL COLD AND SINUS [Suspect]
     Indication: HYPERSENSITIVITY
     Dosage: UNK
     Route: 048

REACTIONS (5)
  - Off label use [Unknown]
  - Euphoric mood [Unknown]
  - Energy increased [Unknown]
  - Therapeutic response unexpected [Unknown]
  - Poor quality sleep [Unknown]
